FAERS Safety Report 10910341 (Version 4)
Quarter: 2015Q2

REPORT INFORMATION
  Report Type: Report from Study
  Country: US (occurrence: US)
  Receive Date: 20150312
  Receipt Date: 20150625
  Transmission Date: 20150821
  Serious: Yes (Hospitalization, Other)
  Sender: FDA-Public Use
  Company Number: US-SA-2015SA027784

PATIENT
  Age: 74 Year
  Sex: Female

DRUGS (6)
  1. AMPYRA [Concomitant]
     Active Substance: DALFAMPRIDINE
     Indication: MULTIPLE SCLEROSIS
     Dosage: FREQUENY: Q 12
  2. THYROXIN [Concomitant]
     Active Substance: LEVOTHYROXINE
     Indication: THYROID DISORDER
  3. AUBAGIO [Suspect]
     Active Substance: TERIFLUNOMIDE
     Indication: MULTIPLE SCLEROSIS
     Route: 048
     Dates: start: 20140917
  4. BACLOFEN. [Concomitant]
     Active Substance: BACLOFEN
     Indication: MUSCLE SPASTICITY
     Route: 048
  5. SIMVASTATIN. [Concomitant]
     Active Substance: SIMVASTATIN
     Indication: LIPIDS INCREASED
  6. AMBIEN [Concomitant]
     Active Substance: ZOLPIDEM TARTRATE
     Indication: INSOMNIA
     Dosage: FREQUENCY: QHS

REACTIONS (17)
  - White blood cell count increased [Unknown]
  - Frustration [Unknown]
  - Chronic obstructive pulmonary disease [Recovering/Resolving]
  - Muscular weakness [Recovered/Resolved]
  - Blister [Unknown]
  - Bronchitis [Recovering/Resolving]
  - Pneumonia [Unknown]
  - Lymphoedema [Not Recovered/Not Resolved]
  - Cough [Not Recovered/Not Resolved]
  - Emphysema [Unknown]
  - Activities of daily living impaired [Unknown]
  - Fear of falling [Unknown]
  - Hypokinesia [Unknown]
  - Dermatitis infected [Not Recovered/Not Resolved]
  - Pulmonary mass [Recovered/Resolved]
  - Increased bronchial secretion [Unknown]
  - Hypoaesthesia [Recovered/Resolved]

NARRATIVE: CASE EVENT DATE: 2014
